FAERS Safety Report 7296872-6 (Version None)
Quarter: 2011Q1

REPORT INFORMATION
  Report Type: 
  Country: None (occurrence: None)
  Receive Date: 20110216
  Receipt Date: 20110208
  Transmission Date: 20110831
  Serious: Yes (Hospitalization)
  Sender: FDA-Public Use
  Company Number: IT-JNJFOC-20110202610

PATIENT
  Age: 46 Year
  Sex: Female

DRUGS (6)
  1. PANTOPRAZOLE [Concomitant]
  2. MELOXICAM [Concomitant]
     Route: 048
  3. REMICADE [Suspect]
     Indication: PSORIASIS
     Route: 042
  4. DEXIBUPROFEN [Concomitant]
  5. FLUVASTATIN SODIUM [Concomitant]
  6. ANABOLIC STEROIDS [Concomitant]

REACTIONS (3)
  - RENAL FAILURE [None]
  - LUNG INFECTION PSEUDOMONAL [None]
  - RHABDOMYOLYSIS [None]
